FAERS Safety Report 9013533 (Version 1)
Quarter: 2013Q1

REPORT INFORMATION
  Report Type: Spontaneous
  Country: US (occurrence: None)
  Receive Date: 20130107
  Receipt Date: 20130107
  Transmission Date: 20140127
  Serious: Yes (Other)
  Sender: FDA-Public Use
  Company Number: None

PATIENT
  Sex: Female
  Weight: 48.08 kg

DRUGS (2)
  1. DIVALPROEX [Suspect]
     Indication: GRAND MAL CONVULSION
     Dosage: 1500 QHS PO
     Route: 048
     Dates: start: 2008
  2. DIVALPROEX [Suspect]
     Indication: CLONIC CONVULSION
     Dosage: 1500 QHS PO
     Route: 048
     Dates: start: 2008

REACTIONS (1)
  - Convulsion [None]
